FAERS Safety Report 17270431 (Version 9)
Quarter: 2021Q2

REPORT INFORMATION
  Report Type: Report from Study
  Country: FR (occurrence: FR)
  Receive Date: 20200114
  Receipt Date: 20210614
  Transmission Date: 20210716
  Serious: Yes (Other)
  Sender: FDA-Public Use
  Company Number: FR-ASTRAZENECA-2020SE03127

PATIENT
  Age: 836 Month
  Sex: Female
  Weight: 85 kg

DRUGS (9)
  1. LYNPARZA [Suspect]
     Active Substance: OLAPARIB
     Indication: OVARIAN CANCER
     Route: 048
     Dates: start: 20191030, end: 20200106
  2. CARBOPLATIN. [Concomitant]
     Active Substance: CARBOPLATIN
     Dosage: RECEIVED 6 CYCLES EVERY 3 WEEKS
     Route: 065
     Dates: start: 20190122, end: 20190507
  3. PACLITAXEL. [Concomitant]
     Active Substance: PACLITAXEL
     Dosage: RECEIVED 6 CYCLES EVERY 3 WEEKS
     Route: 042
     Dates: start: 20190122, end: 20190507
  4. PARACETAMOL [Concomitant]
     Active Substance: ACETAMINOPHEN
  5. CARBOPLATIN. [Concomitant]
     Active Substance: CARBOPLATIN
     Dosage: 3 CYCLES PARTIAL RESPONSE
     Route: 065
     Dates: start: 20190722, end: 20190914
  6. PRODOL [Concomitant]
     Indication: HYPERTENSION
  7. LYNPARZA [Suspect]
     Active Substance: OLAPARIB
     Indication: OVARIAN CANCER
     Route: 048
     Dates: start: 20200115
  8. BISOPROLOL [Concomitant]
     Active Substance: BISOPROLOL
  9. LYNPARZA [Suspect]
     Active Substance: OLAPARIB
     Indication: OVARIAN CANCER
     Route: 048
     Dates: start: 20200106, end: 20200114

REACTIONS (17)
  - Blood creatinine increased [Not Recovered/Not Resolved]
  - Blood urea increased [Recovered/Resolved]
  - Neutrophil count decreased [Recovered/Resolved]
  - Fluid intake reduced [Unknown]
  - Mean cell volume increased [Unknown]
  - Haemoglobin decreased [Recovered/Resolved]
  - Creatinine renal clearance decreased [Not Recovered/Not Resolved]
  - Red blood cell count decreased [Recovering/Resolving]
  - Renal failure [Not Recovered/Not Resolved]
  - White blood cell count decreased [Recovered/Resolved]
  - Alanine aminotransferase decreased [Recovered/Resolved]
  - Glomerular filtration rate decreased [Not Recovered/Not Resolved]
  - Pulmonary mass [Unknown]
  - Renal disorder [Unknown]
  - Platelet count decreased [Recovered/Resolved]
  - Haematocrit decreased [Recovered/Resolved]
  - Mean cell haemoglobin increased [Unknown]

NARRATIVE: CASE EVENT DATE: 201912
